FAERS Safety Report 11944932 (Version 1)
Quarter: 2016Q1

REPORT INFORMATION
  Report Type: Spontaneous
  Country: US (occurrence: US)
  Receive Date: 20160125
  Receipt Date: 20160125
  Transmission Date: 20160526
  Serious: No
  Sender: FDA-Public Use
  Company Number: US-PFIZER INC-2016035418

PATIENT
  Age: 41 Year
  Sex: Male
  Weight: 95 kg

DRUGS (1)
  1. LYRICA [Suspect]
     Active Substance: PREGABALIN
     Indication: NEUROPATHY PERIPHERAL
     Dosage: 100 MG, 2X/DAY
     Route: 048

REACTIONS (7)
  - Restlessness [Unknown]
  - Feeling abnormal [Unknown]
  - Pain [Unknown]
  - Burning sensation [Unknown]
  - Malaise [Unknown]
  - Irritability [Unknown]
  - Insomnia [Unknown]
